FAERS Safety Report 4412517-4 (Version None)
Quarter: 2004Q2

REPORT INFORMATION
  Report Type: 
  Country: None (occurrence: None)
  Receive Date: 20040630
  Receipt Date: 20040426
  Transmission Date: 20050107
  Serious: No
  Sender: FDA-Public Use
  Company Number: 04P-163-0258704-00

PATIENT
  Age: 45 Year
  Sex: Female
  Weight: 88.4514 kg

DRUGS (14)
  1. HUMIRA [Suspect]
     Indication: PSORIATIC ARTHROPATHY
     Dosage: 40 MG, 1 IN 2 WK, SUBCUTANEOUS
     Route: 058
     Dates: start: 20040423
  2. LEFLUNOMIDE [Concomitant]
  3. TRAMADOL HYDROCHLORIDE [Concomitant]
  4. SUCRALFATE [Concomitant]
  5. SIMVASTATIN [Concomitant]
  6. FLUOXETINE HCL [Concomitant]
  7. CLARINEX [Concomitant]
  8. FLUTICASONE PROPIONATE [Concomitant]
  9. BUCINDOLOL HYDROCHLORIDE [Concomitant]
  10. PROPRANOLOL HYDROCHLORIDE [Concomitant]
  11. PROPACET 100 [Concomitant]
  12. DIAZEPAM [Concomitant]
  13. FERROUS GLUCONATE [Concomitant]
  14. MULTI-VITAMINS [Concomitant]

REACTIONS (1)
  - INJECTION SITE RASH [None]
